FAERS Safety Report 8427066-6 (Version None)
Quarter: 2012Q2

REPORT INFORMATION
  Report Type: 
  Country: None (occurrence: None)
  Receive Date: 20120611
  Receipt Date: 20120601
  Transmission Date: 20120825
  Serious: Yes (Other)
  Sender: FDA-Public Use
  Company Number: GB-JNJFOC-20120604007

PATIENT
  Sex: Male
  Weight: 89.3 kg

DRUGS (6)
  1. USTEKINUMAB [Suspect]
     Indication: PSORIASIS
     Route: 058
     Dates: start: 20101025
  2. HYDROXYUREA [Concomitant]
     Route: 065
     Dates: start: 20111101, end: 20120414
  3. RAMIPRIL [Concomitant]
     Route: 065
     Dates: start: 20050622
  4. ROSUVASTATIN [Concomitant]
     Route: 065
     Dates: start: 20060811
  5. AMLODIPINE [Concomitant]
     Route: 065
     Dates: start: 20060111
  6. ASPIRIN [Concomitant]
     Route: 065
     Dates: start: 20050619

REACTIONS (1)
  - SQUAMOUS CELL CARCINOMA [None]
